FAERS Safety Report 5283694-0 (Version None)
Quarter: 2007Q2

REPORT INFORMATION
  Report Type: 
  Country: None (occurrence: None)
  Receive Date: 20070402
  Receipt Date: 20070322
  Transmission Date: 20071010
  Serious: Yes (Hospitalization)
  Sender: FDA-Public Use
  Company Number: FR-SANOFI-SYNTHELABO-A02200700852

PATIENT
  Age: 84 Year
  Sex: Female

DRUGS (4)
  1. ARICEPT [Concomitant]
     Route: 048
  2. ARICEPT [Concomitant]
     Route: 048
  3. TEMESTA [Suspect]
     Indication: DRUG USE FOR UNKNOWN INDICATION
     Dosage: UNK
     Route: 048
     Dates: end: 20060610
  4. STILNOX [Suspect]
     Indication: DRUG USE FOR UNKNOWN INDICATION
     Route: 048
     Dates: end: 20060610

REACTIONS (3)
  - DISTURBANCE IN ATTENTION [None]
  - FALL [None]
  - TRAUMATIC BRAIN INJURY [None]
